FAERS Safety Report 18490647 (Version 1)
Quarter: 2020Q4

REPORT INFORMATION
  Report Type: Report from Study
  Country: US (occurrence: US)
  Receive Date: 20201111
  Receipt Date: 20201111
  Transmission Date: 20210114
  Serious: Yes (Other)
  Sender: FDA-Public Use
  Company Number: US-TEVA-2020-US-1846313

PATIENT
  Age: 17 Year
  Sex: Male

DRUGS (4)
  1. CARBAMAZEPINE. [Suspect]
     Active Substance: CARBAMAZEPINE
     Indication: BIPOLAR DISORDER
     Route: 065
  2. CARBAMAZEPINE. [Suspect]
     Active Substance: CARBAMAZEPINE
     Indication: AFFECTIVE DISORDER
  3. PERPHENAZINE. [Suspect]
     Active Substance: PERPHENAZINE
     Indication: BIPOLAR DISORDER
     Route: 065
  4. PERPHENAZINE. [Suspect]
     Active Substance: PERPHENAZINE
     Indication: AFFECTIVE DISORDER

REACTIONS (3)
  - Cholestasis [Recovered/Resolved]
  - Drug-induced liver injury [Recovered/Resolved]
  - Hepatitis cholestatic [Recovered/Resolved]
